FAERS Safety Report 10120878 (Version 1)
Quarter: 2014Q2

REPORT INFORMATION
  Report Type: Report from Study
  Country: AR (occurrence: AR)
  Receive Date: 20140425
  Receipt Date: 20140425
  Transmission Date: 20141212
  Serious: Yes (Death, Hospitalization, Other)
  Sender: FDA-Public Use
  Company Number: PHHY2014AR050483

PATIENT
  Age: 87 Year
  Sex: Female

DRUGS (1)
  1. DIOVAN D [Suspect]
     Indication: HYPERTENSION
     Dosage: 80/12.5 MG, DAILY
     Route: 048
     Dates: start: 1994

REACTIONS (3)
  - Cardio-respiratory arrest [Fatal]
  - Hip fracture [Unknown]
  - Depression [Unknown]
